FAERS Safety Report 13665688 (Version 3)
Quarter: 2017Q3

REPORT INFORMATION
  Report Type: Spontaneous
  Country: SI (occurrence: SI)
  Receive Date: 20170619
  Receipt Date: 20170804
  Transmission Date: 20171127
  Serious: Yes (Other)
  Sender: FDA-Public Use
  Company Number: SI-NOVOPROD-549095

PATIENT
  Age: 55 Year
  Sex: Male

DRUGS (1)
  1. XULTOPHY 100/3.6 [Suspect]
     Active Substance: INSULIN DEGLUDEC\LIRAGLUTIDE
     Indication: TYPE 2 DIABETES MELLITUS
     Dosage: 16 DOSE STEPS
     Route: 065
     Dates: start: 20170308

REACTIONS (1)
  - Small cell lung cancer [Recovering/Resolving]

NARRATIVE: CASE EVENT DATE: 201706
